FAERS Safety Report 18482649 (Version 1)
Quarter: 2020Q4

REPORT INFORMATION
  Report Type: Spontaneous
  Country: US (occurrence: US)
  Receive Date: 20201109
  Receipt Date: 20201109
  Transmission Date: 20210114
  Serious: Yes (Hospitalization)
  Sender: FDA-Public Use
  Company Number: US-009507513-2010USA012163

PATIENT
  Age: 70 Year
  Sex: Female

DRUGS (19)
  1. ZANTAC [Concomitant]
     Active Substance: RANITIDINE HYDROCHLORIDE
  2. MIRALAX [Concomitant]
     Active Substance: POLYETHYLENE GLYCOL 3350
  3. LORAZEPAM. [Concomitant]
     Active Substance: LORAZEPAM
  4. TAGRISSO [Suspect]
     Active Substance: OSIMERTINIB
     Indication: LUNG CARCINOMA CELL TYPE UNSPECIFIED RECURRENT
     Route: 048
     Dates: start: 20160219
  5. OMEGA-3 ACIDS [Concomitant]
     Active Substance: OMEGA-3 FATTY ACIDS
  6. BACLOFEN. [Concomitant]
     Active Substance: BACLOFEN
  7. MAGNESIUM OXIDE. [Concomitant]
     Active Substance: MAGNESIUM OXIDE
  8. PROBIOTICS (UNSPECIFIED) [Concomitant]
     Active Substance: PROBIOTICS NOS
  9. PRINIVIL [Suspect]
     Active Substance: LISINOPRIL
     Route: 048
  10. XGEVA [Concomitant]
     Active Substance: DENOSUMAB
  11. TAGRISSO [Suspect]
     Active Substance: OSIMERTINIB
     Indication: BONE CANCER
     Route: 048
     Dates: start: 20160218
  12. SENNA PLUS [Concomitant]
     Active Substance: DOCUSATE SODIUM\SENNOSIDES\SENNOSIDES A AND B
  13. ASCORBIC ACID. [Concomitant]
     Active Substance: ASCORBIC ACID
  14. PROTEIN (UNSPECIFIED) [Concomitant]
  15. CALCIUM (UNSPECIFIED) [Concomitant]
     Active Substance: CALCIUM
  16. LORAZEPAM. [Concomitant]
     Active Substance: LORAZEPAM
  17. ASPIRIN. [Concomitant]
     Active Substance: ASPIRIN
  18. FOLIC ACID. [Concomitant]
     Active Substance: FOLIC ACID
  19. VITAMINS (UNSPECIFIED) [Concomitant]
     Active Substance: VITAMINS

REACTIONS (19)
  - Dry throat [Unknown]
  - Product dose omission issue [Unknown]
  - Oropharyngeal pain [Unknown]
  - Fatigue [Unknown]
  - Sneezing [Unknown]
  - Dry skin [Unknown]
  - Illness [Unknown]
  - Rash [Unknown]
  - Dry eye [Recovered/Resolved]
  - Large intestinal obstruction [Recovered/Resolved]
  - Acne [Unknown]
  - Blood creatinine increased [Unknown]
  - Confusional state [Unknown]
  - Off label use [Unknown]
  - Genital herpes [Unknown]
  - Muscle spasms [Not Recovered/Not Resolved]
  - Rhinorrhoea [Unknown]
  - Skin reaction [Unknown]
  - Product use in unapproved indication [Unknown]

NARRATIVE: CASE EVENT DATE: 20160301
